FAERS Safety Report 10816089 (Version 1)
Quarter: 2015Q1

REPORT INFORMATION
  Report Type: Report from Study
  Country: US (occurrence: US)
  Receive Date: 20150218
  Receipt Date: 20150218
  Transmission Date: 20150721
  Serious: No
  Sender: FDA-Public Use
  Company Number: US-ABBVIE-14K-163-1285720-00

PATIENT
  Sex: Male

DRUGS (1)
  1. HUMIRA [Suspect]
     Active Substance: ADALIMUMAB
     Indication: PSORIASIS
     Dates: start: 2009

REACTIONS (4)
  - Poor quality drug administered [Unknown]
  - Incorrect product storage [Unknown]
  - Musculoskeletal stiffness [Not Recovered/Not Resolved]
  - Rash papular [Not Recovered/Not Resolved]
